FAERS Safety Report 6445218-1 (Version None)
Quarter: 2009Q4

REPORT INFORMATION
  Report Type: 
  Country: None (occurrence: None)
  Receive Date: 20091118
  Receipt Date: 20091112
  Transmission Date: 20100525
  Serious: Yes (Other)
  Sender: FDA-Public Use
  Company Number: CHPA2009US22055

PATIENT
  Sex: Male

DRUGS (1)
  1. BENEFIBER PLUS CALCIUM WITH WHEAT DEXTRIN(NCH) [Suspect]
     Dosage: UNK, UNK
     Route: 048

REACTIONS (2)
  - CARDIAC DISORDER [None]
  - RENAL DISORDER [None]
